FAERS Safety Report 19843029 (Version 2)
Quarter: 2021Q4

REPORT INFORMATION
  Report Type: Spontaneous
  Country: IT (occurrence: IT)
  Receive Date: 20210917
  Receipt Date: 20211203
  Transmission Date: 20220304
  Serious: Yes (Death)
  Sender: FDA-Public Use
  Company Number: IT-VALIDUS PHARMACEUTICALS LLC-IT-VDP-2021-001536

PATIENT

DRUGS (4)
  1. LASIX [Suspect]
     Active Substance: FUROSEMIDE
     Indication: Cardiac failure congestive
     Dosage: 125 MG, QD
     Route: 048
     Dates: start: 20210617, end: 20210624
  2. LASIX [Suspect]
     Active Substance: FUROSEMIDE
     Indication: Cardiac failure congestive
     Dosage: 250 MG, QD
     Route: 042
     Dates: start: 20210614, end: 20210617
  3. ZAROXOLYN [Suspect]
     Active Substance: METOLAZONE
     Indication: Product used for unknown indication
     Dosage: 5 MG, QD
     Route: 048
     Dates: start: 20210615, end: 20210624
  4. CANRENOATE POTASSIUM [Concomitant]
     Active Substance: CANRENOATE POTASSIUM
     Indication: Cardiac failure congestive
     Dosage: UNK
     Route: 065
     Dates: start: 20210614, end: 20210623

REACTIONS (1)
  - Hyponatraemic syndrome [Fatal]

NARRATIVE: CASE EVENT DATE: 20210620
